FAERS Safety Report 8716384 (Version 2)
Quarter: 2013Q4

REPORT INFORMATION
  Report Type: Spontaneous
  Country: US (occurrence: US)
  Receive Date: 20120810
  Receipt Date: 20131106
  Transmission Date: 20140711
  Serious: Yes (Other)
  Sender: FDA-Public Use
  Company Number: US-009507513-1207USA011561

PATIENT
  Sex: Female

DRUGS (4)
  1. VICTRELIS [Suspect]
     Route: 048
  2. COPEGUS [Suspect]
     Route: 048
  3. PROMETHAZINE [Suspect]
  4. PEGINTERFERON ALFA-2A [Suspect]

REACTIONS (15)
  - Scratch [Unknown]
  - Nausea [Unknown]
  - Drug ineffective [Unknown]
  - Syncope [Unknown]
  - Feeling abnormal [Unknown]
  - Middle insomnia [Unknown]
  - Dizziness [Unknown]
  - Hyperhidrosis [Unknown]
  - Injection site reaction [Unknown]
  - Drug hypersensitivity [Unknown]
  - White blood cell count decreased [Unknown]
  - Unevaluable event [Unknown]
  - Dyspnoea [Unknown]
  - Red blood cell count decreased [Unknown]
  - Asthenia [Unknown]
